FAERS Safety Report 17831522 (Version 2)
Quarter: 2020Q3

REPORT INFORMATION
  Report Type: Spontaneous
  Country: DE (occurrence: DE)
  Receive Date: 20200527
  Receipt Date: 20200709
  Transmission Date: 20201103
  Serious: Yes (Hospitalization, Other)
  Sender: FDA-Public Use
  Company Number: DE-ELI_LILLY_AND_COMPANY-DE202005005447

PATIENT
  Age: 57 Year
  Sex: Male
  Weight: 58 kg

DRUGS (10)
  1. ZYPADHERA [Suspect]
     Active Substance: OLANZAPINE PAMOATE
     Indication: SCHIZOPHRENIA
     Dosage: UNK UNK, UNKNOWN
     Route: 030
     Dates: start: 20200214, end: 20200508
  2. ZYPADHERA [Suspect]
     Active Substance: OLANZAPINE PAMOATE
     Indication: AGITATION
  3. ZYPADHERA [Suspect]
     Active Substance: OLANZAPINE PAMOATE
     Indication: AGGRESSION
  4. ZYPADHERA [Suspect]
     Active Substance: OLANZAPINE PAMOATE
     Indication: AGGRESSION
  5. ZYPADHERA [Suspect]
     Active Substance: OLANZAPINE PAMOATE
     Indication: AGGRESSION
  6. ZYPADHERA [Suspect]
     Active Substance: OLANZAPINE PAMOATE
     Indication: AGITATION
  7. ZYPADHERA [Suspect]
     Active Substance: OLANZAPINE PAMOATE
     Indication: SCHIZOPHRENIA
     Dosage: UNK UNK, UNKNOWN
     Route: 030
     Dates: start: 20200214, end: 20200508
  8. ZYPADHERA [Suspect]
     Active Substance: OLANZAPINE PAMOATE
     Indication: AGITATION
  9. PANTOPRAZOLE [Concomitant]
     Active Substance: PANTOPRAZOLE
     Indication: PRODUCT USED FOR UNKNOWN INDICATION
     Dosage: 1 DOSAGE FORM, DAILY
     Route: 065
  10. ZYPADHERA [Suspect]
     Active Substance: OLANZAPINE PAMOATE
     Indication: SCHIZOPHRENIA
     Dosage: UNK UNK, UNKNOWN
     Route: 030
     Dates: start: 20200214, end: 20200508

REACTIONS (5)
  - Blood pressure decreased [Recovered/Resolved]
  - Post-injection delirium sedation syndrome [Unknown]
  - Pyrexia [Recovered/Resolved]
  - Somnolence [Recovered/Resolved]
  - Syncope [Unknown]
